FAERS Safety Report 4470105-8 (Version None)
Quarter: 2004Q3

REPORT INFORMATION
  Report Type: 
  Country: None (occurrence: None)
  Receive Date: 20040910
  Receipt Date: 20040706
  Transmission Date: 20050211
  Serious: No
  Sender: FDA-Public Use
  Company Number: 2004222924US

PATIENT
  Age: 74 Year
  Sex: Male
  Weight: 90.7 kg

DRUGS (6)
  1. BEXTRA [Suspect]
     Indication: MUSCLE SPASMS
     Dosage: 10 MG, QD
     Dates: start: 20040627, end: 20040704
  2. PLAVIX [Concomitant]
  3. FLOMAX [Concomitant]
  4. LISINOPRIL [Concomitant]
  5. ZOCOR [Concomitant]
  6. DETROL LA [Concomitant]

REACTIONS (3)
  - DRUG INTERACTION [None]
  - POLLAKIURIA [None]
  - STOMACH DISCOMFORT [None]
